FAERS Safety Report 11189265 (Version 1)
Quarter: 2015Q2

REPORT INFORMATION
  Report Type: Spontaneous
  Country: FI (occurrence: FI)
  Receive Date: 20150615
  Receipt Date: 20150615
  Transmission Date: 20150821
  Serious: Yes (Other)
  Sender: FDA-Public Use
  Company Number: FI-ROCHE-1589612

PATIENT
  Age: 76 Year
  Sex: Female

DRUGS (2)
  1. RISPERIDONE. [Concomitant]
     Active Substance: RISPERIDONE
  2. ZELBORAF [Suspect]
     Active Substance: VEMURAFENIB
     Indication: PRODUCT USED FOR UNKNOWN INDICATION
     Route: 065
     Dates: end: 2013

REACTIONS (7)
  - C-reactive protein increased [Recovered/Resolved]
  - Skin papilloma [Recovered/Resolved]
  - Alanine aminotransferase increased [Recovered/Resolved]
  - Skin exfoliation [Recovered/Resolved]
  - Skin infection [Recovered/Resolved]
  - Rash generalised [Recovered/Resolved]
  - Arthralgia [Recovered/Resolved]

NARRATIVE: CASE EVENT DATE: 2013
